FAERS Safety Report 4874782-9 (Version None)
Quarter: 2006Q1

REPORT INFORMATION
  Report Type: 
  Country: None (occurrence: None)
  Receive Date: 20060109
  Receipt Date: 20051121
  Transmission Date: 20060701
  Serious: Yes (Hospitalization)
  Sender: FDA-Public Use
  Company Number: BE-AVENTIS-200520207GDDC

PATIENT
  Age: 58 Year
  Sex: Male
  Weight: 99.3 kg

DRUGS (12)
  1. TAXOTERE [Suspect]
     Indication: PROSTATE CANCER
     Route: 042
     Dates: start: 20050419, end: 20050419
  2. TAXOTERE [Suspect]
     Route: 042
     Dates: start: 20051101, end: 20051101
  3. ANTINEOPLASTIC AND IMMUNOSUPPRESSIVE AGENTS [Suspect]
     Indication: PROSTATE CANCER
     Dosage: DOSE: 7 MG/KG/DAY
     Route: 042
     Dates: start: 20050415, end: 20051103
  4. LORAMET [Concomitant]
  5. EMCONCOR [Concomitant]
  6. PROZAC [Concomitant]
  7. DECAPEPTYL                              /SCH/ [Concomitant]
     Route: 030
  8. IMODIUM [Concomitant]
     Route: 048
  9. COLCHICINE [Concomitant]
  10. OMEPRAZOLE [Concomitant]
  11. BRUFEN [Concomitant]
  12. CONTRAMAL [Concomitant]

REACTIONS (9)
  - ANAEMIA [None]
  - ANOREXIA [None]
  - ASTHENIA [None]
  - CONJUNCTIVITIS [None]
  - DIARRHOEA [None]
  - HALLUCINATION, VISUAL [None]
  - HEPATIC STEATOSIS [None]
  - MUCOSAL INFLAMMATION [None]
  - PERFORMANCE STATUS DECREASED [None]
